FAERS Safety Report 4539943-7 (Version None)
Quarter: 2004Q4

REPORT INFORMATION
  Report Type: 
  Country: None (occurrence: None)
  Receive Date: 20041223
  Receipt Date: 20041215
  Transmission Date: 20050328
  Serious: Yes (Other)
  Sender: FDA-Public Use
  Company Number: 2004113561

PATIENT
  Sex: Female
  Weight: 63.5036 kg

DRUGS (8)
  1. NEURONTIN [Suspect]
     Indication: ARTHRALGIA
     Dosage: (400 MG), ORAL
     Route: 048
     Dates: start: 20030101
  2. NEURONTIN [Suspect]
     Indication: PAIN IN EXTREMITY
     Dosage: (400 MG), ORAL
     Route: 048
     Dates: start: 20030101
  3. ESCITALOPRAM (ESCITALOPRAM) [Suspect]
     Indication: ANXIETY
     Dosage: ORAL
     Route: 048
     Dates: start: 20041001, end: 20040101
  4. ESCITALOPRAM (ESCITALOPRAM) [Suspect]
     Indication: DEPRESSION
     Dosage: ORAL
     Route: 048
     Dates: start: 20041001, end: 20040101
  5. ALPRAZOLAM [Concomitant]
  6. MELOXICAM (MELOXICAM) [Concomitant]
  7. TIZANIDINE HCL [Concomitant]
  8. QUETIAPINE FUMARATE (QUETIAPINE FUMARATE) [Concomitant]

REACTIONS (3)
  - DISORIENTATION [None]
  - DYSSTASIA [None]
  - INCOHERENT [None]
